FAERS Safety Report 7222798-X (Version None)
Quarter: 2011Q1

REPORT INFORMATION
  Report Type: 
  Country: None (occurrence: None)
  Receive Date: 20110112
  Receipt Date: 20101228
  Transmission Date: 20110831
  Serious: No
  Sender: FDA-Public Use
  Company Number: US-B.I. PHARMACEUTICALS,INC./RIDGEFIELD-2011-BP-00160BP

PATIENT
  Age: 88 Year
  Sex: Male

DRUGS (6)
  1. LISINOPRIL [Concomitant]
     Indication: HYPERTENSION
     Route: 048
  2. METOPROLOL [Concomitant]
     Indication: HYPERTENSION
     Route: 048
  3. LEVOTHYROXINE [Concomitant]
     Indication: THYROID DISORDER
     Route: 048
  4. LIPITOR [Concomitant]
     Indication: BLOOD CHOLESTEROL INCREASED
     Route: 048
  5. PRADAXA [Suspect]
     Dosage: 300 MG
     Route: 048
     Dates: start: 20101217
  6. FELODIPINE [Concomitant]
     Indication: HYPERTENSION
     Route: 048

REACTIONS (1)
  - URINE OUTPUT INCREASED [None]
